FAERS Safety Report 21240232 (Version 5)
Quarter: 2022Q4

REPORT INFORMATION
  Report Type: Other
  Country: GB (occurrence: None)
  Receive Date: 20220822
  Receipt Date: 20221212
  Transmission Date: 20230112
  Serious: Yes (Hospitalization, Other)
  Sender: FDA-Public Use
  Company Number: GB-ROCHE-3164292

PATIENT
  Age: 62 Year
  Sex: Male
  Weight: 74.75 kg

DRUGS (22)
  1. ATEZOLIZUMAB [Suspect]
     Active Substance: ATEZOLIZUMAB
     Indication: Hepatocellular carcinoma
     Route: 041
     Dates: start: 20210817
  2. BEVACIZUMAB [Suspect]
     Active Substance: BEVACIZUMAB
     Indication: Hepatocellular carcinoma
     Route: 065
     Dates: start: 20210817
  3. PREGABALIN [Concomitant]
     Active Substance: PREGABALIN
     Dates: start: 20210513
  4. ZOPICLONE [Concomitant]
     Active Substance: ZOPICLONE
     Dates: start: 20170705
  5. OXYCONTIN [Concomitant]
     Active Substance: OXYCODONE HYDROCHLORIDE
     Dates: start: 20211006
  6. OXYCODONE HYDROCHLORIDE [Concomitant]
     Active Substance: OXYCODONE HYDROCHLORIDE
  7. DOMPERIDONE [Concomitant]
     Active Substance: DOMPERIDONE
     Dates: start: 20210817
  8. CHLORHEXIDINE HYDROCHLORIDE\NEOMYCIN SULFATE [Concomitant]
     Active Substance: CHLORHEXIDINE HYDROCHLORIDE\NEOMYCIN SULFATE
     Route: 045
     Dates: start: 20190909
  9. HYDROCORTISONE [Concomitant]
     Active Substance: HYDROCORTISONE
     Dates: start: 20210909
  10. FERROUS FUMARATE [Concomitant]
     Active Substance: FERROUS FUMARATE
     Indication: Blood iron decreased
     Dates: start: 20210907
  11. BENZYDAMINE [Concomitant]
     Active Substance: BENZYDAMINE
     Dates: start: 20211130
  12. GELCLAIR (UNITED KINGDOM) [Concomitant]
     Dates: start: 20211130
  13. CHLORPHENIRAMINE MALEATE [Concomitant]
     Active Substance: CHLORPHENIRAMINE MALEATE
     Indication: Pruritus
     Dates: start: 20211130
  14. XYLOMETAZOLINE HYDROCHLORIDE [Concomitant]
     Active Substance: XYLOMETAZOLINE HYDROCHLORIDE
     Dates: start: 20220118
  15. ASPIRIN [Concomitant]
     Active Substance: ASPIRIN
     Dates: start: 20220322
  16. ACETAMINOPHEN [Concomitant]
     Active Substance: ACETAMINOPHEN
     Dates: start: 20220302
  17. HYDROCORTISONE [Concomitant]
     Active Substance: HYDROCORTISONE
     Route: 002
     Dates: start: 20220404
  18. PRAMIPEXOLE [Concomitant]
     Active Substance: PRAMIPEXOLE
     Dates: start: 20220421
  19. OXYCODONE [Concomitant]
     Active Substance: OXYCODONE
     Dates: start: 20220622, end: 20220624
  20. MORPHINE [Concomitant]
     Active Substance: MORPHINE
     Dates: start: 20220624
  21. ACTIMORPH [Concomitant]
     Dates: start: 20220624
  22. OMEPRAZOLE [Concomitant]
     Active Substance: OMEPRAZOLE
     Indication: Abdominal pain upper
     Dates: start: 20220706

REACTIONS (8)
  - Ascites [Recovering/Resolving]
  - Hepatic function abnormal [Recovered/Resolved]
  - Acute kidney injury [Not Recovered/Not Resolved]
  - Hepatic function abnormal [Not Recovered/Not Resolved]
  - Abdominal pain upper [Recovering/Resolving]
  - Abdominal distension [Recovering/Resolving]
  - Blood bilirubin increased [Recovering/Resolving]
  - Dyspepsia [Recovering/Resolving]

NARRATIVE: CASE EVENT DATE: 20220614
